FAERS Safety Report 8342414-3 (Version None)
Quarter: 2012Q2

REPORT INFORMATION
  Report Type: 
  Country: None (occurrence: None)
  Receive Date: 20120508
  Receipt Date: 20120430
  Transmission Date: 20120825
  Serious: Yes (Other)
  Sender: FDA-Public Use
  Company Number: US-BIOGENIDEC-2012BI013034

PATIENT
  Age: 36 Year
  Sex: Female
  Weight: 82 kg

DRUGS (9)
  1. VITAMIN D [Concomitant]
  2. DIFLUCAN [Concomitant]
  3. TYSABRI [Suspect]
     Indication: CROHN'S DISEASE
     Route: 042
     Dates: start: 20100318
  4. PROCHLORPERAZINE MALEATE [Concomitant]
  5. TOPAMAX [Concomitant]
  6. MAGNESIUM [Concomitant]
  7. MEDROL [Concomitant]
  8. BACTRIM [Concomitant]
  9. MACROBID [Concomitant]

REACTIONS (6)
  - PROGRESSIVE MULTIFOCAL LEUKOENCEPHALOPATHY [None]
  - DIPLOPIA [None]
  - APHASIA [None]
  - HYPOAESTHESIA [None]
  - MUSCULAR WEAKNESS [None]
  - HEADACHE [None]
